FAERS Safety Report 24965149 (Version 1)
Quarter: 2025Q1

REPORT INFORMATION
  Report Type: Spontaneous
  Country: US (occurrence: US)
  Receive Date: 20250213
  Receipt Date: 20250213
  Transmission Date: 20250408
  Serious: Yes (Other)
  Sender: JOHNSON AND JOHNSON
  Company Number: US-JNJFOC-20250208608

PATIENT
  Age: 68 Year
  Sex: Female

DRUGS (2)
  1. XARELTO [Suspect]
     Active Substance: RIVAROXABAN
     Indication: Thrombosis
     Route: 048
  2. XARELTO [Suspect]
     Active Substance: RIVAROXABAN
     Route: 048

REACTIONS (7)
  - Internal haemorrhage [Unknown]
  - Mouth haemorrhage [Unknown]
  - Treatment noncompliance [Unknown]
  - Drug intolerance [Unknown]
  - Peripheral swelling [Unknown]
  - Visual impairment [Unknown]
  - Product dose omission issue [Unknown]
